FAERS Safety Report 20402006 (Version 2)
Quarter: 2022Q1

REPORT INFORMATION
  Report Type: Spontaneous
  Country: US (occurrence: US)
  Receive Date: 20220131
  Receipt Date: 20220201
  Transmission Date: 20220423
  Serious: Yes (Hospitalization)
  Sender: FDA-Public Use
  Company Number: US-ABBVIE-21K-163-4088932-00

PATIENT
  Sex: Male
  Weight: 98.88 kg

DRUGS (3)
  1. HUMIRA [Suspect]
     Active Substance: ADALIMUMAB
     Indication: Product used for unknown indication
     Route: 058
  2. INFLECTRA [Suspect]
     Active Substance: INFLIXIMAB-DYYB
     Indication: Product used for unknown indication
     Dosage: IV INFUSION, UNKNOWN DOSE
     Route: 065
     Dates: start: 20210805, end: 2021
  3. SULFASALAZINE [Concomitant]
     Active Substance: SULFASALAZINE
     Indication: Product used for unknown indication

REACTIONS (6)
  - Hospitalisation [Unknown]
  - Colitis ulcerative [Unknown]
  - Insomnia [Recovered/Resolved]
  - Anxiety [Recovering/Resolving]
  - Pain [Recovering/Resolving]
  - Unevaluable event [Unknown]
